FAERS Safety Report 4653377-6 (Version None)
Quarter: 2005Q2

REPORT INFORMATION
  Report Type: 
  Country: None (occurrence: None)
  Receive Date: 20050504
  Receipt Date: 20050504
  Transmission Date: 20051028
  Serious: Yes (Congenital Anomaly)
  Sender: FDA-Public Use
  Company Number: None

PATIENT
  Age: 40 Year
  Sex: Female
  Weight: 97.977 kg

DRUGS (6)
  1. AVAPRO [Suspect]
     Indication: HYPERTENSION
     Dosage: 300 DAILY ORALLY; 150 DAILY ORALLY
     Route: 048
     Dates: start: 20050319, end: 20050419
  2. METFORMIN HCL [Concomitant]
  3. TRICOR [Concomitant]
  4. TOPROL-XL [Concomitant]
  5. GLIPIZIDE [Concomitant]
  6. LANTUS [Concomitant]

REACTIONS (9)
  - CHEST PAIN [None]
  - DRUG EXPOSURE DURING PREGNANCY [None]
  - DYSPNOEA [None]
  - FLATULENCE [None]
  - HAEMORRHAGE [None]
  - HEADACHE [None]
  - OLIGOHYDRAMNIOS [None]
  - PARAESTHESIA [None]
  - PREGNANCY [None]
